FAERS Safety Report 7619540-7 (Version None)
Quarter: 2011Q3

REPORT INFORMATION
  Report Type: 
  Country: None (occurrence: None)
  Receive Date: 20110719
  Receipt Date: 20110705
  Transmission Date: 20111222
  Serious: Yes (Hospitalization)
  Sender: FDA-Public Use
  Company Number: US-UCBSA-036724

PATIENT
  Sex: Female
  Weight: 61.23 kg

DRUGS (13)
  1. ULTRASE MT20 [Concomitant]
     Indication: ANTACID THERAPY
     Route: 048
  2. ELMIRON [Concomitant]
     Indication: CYSTITIS INTERSTITIAL
     Route: 048
  3. AMITRIPTYLINE HCL [Concomitant]
     Indication: ANALGESIC THERAPY
     Dosage: 1 AT HS
     Route: 048
  4. KETOCONAZOLE [Concomitant]
     Indication: ANTIFUNGAL PROPHYLAXIS
     Route: 048
  5. LEVOTHYROXINE SODIUM [Concomitant]
     Indication: THYROID DISORDER
     Route: 048
     Dates: start: 19860101
  6. CIMZIA [Suspect]
     Indication: CROHN'S DISEASE
     Dosage: INDUCTION DOSE APROXIMATELY FEB-2009.
     Route: 058
     Dates: start: 20090301
  7. BACTRIM [Concomitant]
     Indication: ANTIBIOTIC THERAPY
     Dosage: ONE TABLET  SINGLE DOSE
     Route: 048
     Dates: start: 20110701
  8. DETROL LA [Concomitant]
     Indication: BLADDER DISORDER
     Route: 048
  9. MIRALAX [Concomitant]
     Indication: LAXATIVE SUPPORTIVE CARE
     Dosage: ONE GLASS
     Route: 048
     Dates: start: 20100701
  10. LIALDA [Concomitant]
     Indication: CROHN'S DISEASE
     Route: 048
  11. SENOKOT [Concomitant]
     Indication: LAXATIVE SUPPORTIVE CARE
     Dosage: 2 TABLETS  SINGLE DOSE
     Route: 048
     Dates: start: 20110701
  12. GABAPENTIN [Concomitant]
     Indication: NEURALGIA
     Route: 048
  13. AMITRIPTYLINE HCL [Concomitant]
     Indication: SEDATIVE THERAPY
     Dosage: 1 AT HS
     Route: 048

REACTIONS (1)
  - LOCALISED INFECTION [None]
